FAERS Safety Report 7948893-5 (Version None)
Quarter: 2011Q4

REPORT INFORMATION
  Report Type: 
  Country: None (occurrence: None)
  Receive Date: 20111130
  Receipt Date: 20111123
  Transmission Date: 20120403
  Serious: Yes (Other)
  Sender: FDA-Public Use
  Company Number: PHHY2011CA098122

PATIENT
  Sex: Female

DRUGS (3)
  1. VITAMIN D [Concomitant]
     Dosage: UNK UKN, UNK
  2. ZOLEDRONOC ACID [Suspect]
     Indication: OSTEOPOROSIS
     Dosage: UNK UKN, UNK
     Route: 042
     Dates: start: 20100119
  3. CALCIUM [Concomitant]
     Dosage: UNK UKN, UNK

REACTIONS (1)
  - MENISCUS LESION [None]
